FAERS Safety Report 7396645-X (Version None)
Quarter: 2011Q2

REPORT INFORMATION
  Report Type: 
  Country: None (occurrence: None)
  Receive Date: 20110406
  Receipt Date: 20110330
  Transmission Date: 20111010
  Serious: Yes (Death)
  Sender: FDA-Public Use
  Company Number: PHEH2008US11852

PATIENT
  Sex: Female

DRUGS (1)
  1. EXJADE [Suspect]
     Dosage: 500 MG, UNK

REACTIONS (3)
  - SICKLE CELL ANAEMIA [None]
  - CEREBROVASCULAR ACCIDENT [None]
  - CARDIO-RESPIRATORY ARREST [None]
